FAERS Safety Report 5134484-0 (Version None)
Quarter: 2006Q4

REPORT INFORMATION
  Report Type: 
  Country: None (occurrence: None)
  Receive Date: 20061023
  Receipt Date: 20061023
  Transmission Date: 20070319
  Serious: Yes (Hospitalization)
  Sender: FDA-Public Use
  Company Number: None

PATIENT
  Sex: Male
  Weight: 76.3 kg

DRUGS (7)
  1. CYCLOPHOSPHAMIDE [Suspect]
     Dosage: 1900 MG
  2. CYTARABINE [Suspect]
     Dosage: 40 MG
  3. DEXAMETHASONE TAB [Suspect]
     Dosage: 100 MG
  4. DOXORUBICIN HYDROCHLORIDE [Suspect]
     Dosage: 96 MG
  5. LEUCOVORIN CALCIUM [Suspect]
     Dosage: 48 MG
  6. METHOTREXATE [Suspect]
     Dosage: 2885 MG
  7. VINCRISTINE SULFATE [Suspect]
     Dosage: 2 MG

REACTIONS (4)
  - BLOOD CULTURE POSITIVE [None]
  - FEBRILE NEUTROPENIA [None]
  - MUCOSAL INFLAMMATION [None]
  - PAIN [None]
